FAERS Safety Report 17881274 (Version 1)
Quarter: 2020Q2

REPORT INFORMATION
  Report Type: Spontaneous
  Country: US (occurrence: US)
  Receive Date: 20200610
  Receipt Date: 20200610
  Transmission Date: 20200714
  Serious: Yes (Death)
  Sender: FDA-Public Use
  Company Number: US-PFIZER INC-2020083193

PATIENT
  Age: 73 Year
  Sex: Male

DRUGS (2)
  1. SUTENT [Suspect]
     Active Substance: SUNITINIB MALATE
     Dosage: 37.5  MG, UNK
  2. SUTENT [Suspect]
     Active Substance: SUNITINIB MALATE
     Indication: COLON CANCER
     Dosage: 50 MG, DAILY
     Route: 048

REACTIONS (3)
  - Off label use [Unknown]
  - Death [Fatal]
  - Product use in unapproved indication [Unknown]

NARRATIVE: CASE EVENT DATE: 20200527
